FAERS Safety Report 7961884-3 (Version None)
Quarter: 2011Q4

REPORT INFORMATION
  Report Type: 
  Country: None (occurrence: None)
  Receive Date: 20111207
  Receipt Date: 20111104
  Transmission Date: 20120403
  Serious: Yes (Hospitalization)
  Sender: FDA-Public Use
  Company Number: US-ROCHE-1015530

PATIENT
  Age: 61 Year
  Sex: Female

DRUGS (7)
  1. CELEXA [Concomitant]
     Route: 048
  2. METOPROLOL TARTRATE [Concomitant]
     Route: 048
  3. RITUXAN [Suspect]
     Indication: PRODUCT USED FOR UNKNOWN INDICATION
     Route: 042
     Dates: start: 20110124
  4. PERCOCET [Concomitant]
     Dosage: 10/325 MG
     Route: 048
  5. LEXAPRO [Concomitant]
     Route: 048
  6. PRILOSEC [Concomitant]
     Route: 048
  7. AMITRIPTYLINE HCL [Concomitant]
     Route: 048

REACTIONS (1)
  - VEIN PAIN [None]
